FAERS Safety Report 10342625 (Version 1)
Quarter: 2014Q3

REPORT INFORMATION
  Report Type: Spontaneous
  Country: IT (occurrence: IT)
  Receive Date: 20140725
  Receipt Date: 20140725
  Transmission Date: 20150326
  Serious: Yes (Other)
  Sender: FDA-Public Use
  Company Number: IT-WATSON-2014-15927

PATIENT
  Age: 59 Year
  Sex: Male

DRUGS (6)
  1. 5-FLUOROURACIL                     /00098801/ [Suspect]
     Active Substance: FLUOROURACIL
     Dosage: 3600 MG, CYCLICAL
     Route: 041
     Dates: start: 20140123, end: 20140616
  2. OXALIPLATIN (UNKNOWN) [Suspect]
     Active Substance: OXALIPLATIN
     Indication: COLON CANCER METASTATIC
     Dosage: 170 MG, CYCLICAL
     Route: 042
     Dates: start: 20140123, end: 20140516
  3. 5-FLUOROURACIL                     /00098801/ [Suspect]
     Active Substance: FLUOROURACIL
     Indication: COLON CANCER METASTATIC
     Dosage: 600 MG, CYCLICAL
     Route: 040
     Dates: start: 20140123, end: 20140616
  4. LEVOFOLINIC ACID                   /06682102/ [Concomitant]
     Indication: PRODUCT USED FOR UNKNOWN INDICATION
     Dosage: 300 MG, UNK
     Route: 065
     Dates: start: 20140123, end: 20140616
  5. AVASTIN [Suspect]
     Active Substance: BEVACIZUMAB
     Indication: COLON CANCER METASTATIC
     Dosage: 450 MG, CYCLICAL
     Route: 042
     Dates: start: 20140324, end: 20140508
  6. OLMEGAN [Concomitant]
     Indication: PRODUCT USED FOR UNKNOWN INDICATION
     Dosage: UNK
     Route: 065

REACTIONS (2)
  - Ejection fraction decreased [Recovering/Resolving]
  - Neurotoxicity [Not Recovered/Not Resolved]

NARRATIVE: CASE EVENT DATE: 20140429
